FAERS Safety Report 5212943-X (Version None)
Quarter: 2007Q1

REPORT INFORMATION
  Report Type: 
  Country: None (occurrence: None)
  Receive Date: 20070119
  Receipt Date: 20070110
  Transmission Date: 20070707
  Serious: Yes (Other)
  Sender: FDA-Public Use
  Company Number: PHBS2006JP12523

PATIENT
  Age: 77 Year
  Sex: Female

DRUGS (6)
  1. ZOMETA [Suspect]
     Indication: METASTASES TO BONE
     Dosage: 4 MG, ONCE/SINGLE
     Route: 042
     Dates: start: 20060705, end: 20060705
  2. ZOMETA [Suspect]
     Dosage: 4 MG, ONCE/SINGLE
     Route: 042
     Dates: start: 20060802, end: 20060802
  3. ZOMETA [Suspect]
     Dosage: 4 MG, UNK
     Route: 042
     Dates: start: 20061208
  4. BISPHONAL [Suspect]
     Indication: METASTASES TO BONE
     Dosage: 10 MG, UNK
     Route: 042
     Dates: start: 20020403, end: 20030217
  5. CAPECITABINE [Concomitant]
     Route: 065
     Dates: start: 20031001, end: 20040101
  6. AREDIA [Suspect]
     Indication: METASTASES TO BONE
     Dosage: 45 MG, UNK
     Route: 042
     Dates: start: 20050909, end: 20060531

REACTIONS (12)
  - BONE LESION [None]
  - DENTAL TREATMENT [None]
  - GINGIVAL DISORDER [None]
  - IMPAIRED HEALING [None]
  - METASTASES TO LIVER [None]
  - OSTEOLYSIS [None]
  - PAIN [None]
  - PALMAR-PLANTAR ERYTHRODYSAESTHESIA SYNDROME [None]
  - PURULENT DISCHARGE [None]
  - SWELLING [None]
  - TOOTH EXTRACTION [None]
  - WOUND DEBRIDEMENT [None]
